FAERS Safety Report 8575534-9 (Version None)
Quarter: 2012Q3

REPORT INFORMATION
  Report Type: 
  Country: None (occurrence: None)
  Receive Date: 20120807
  Receipt Date: 20120801
  Transmission Date: 20120928
  Serious: Yes (Hospitalization)
  Sender: FDA-Public Use
  Company Number: PHHY2012FR066600

PATIENT
  Sex: Male

DRUGS (18)
  1. EXELON [Suspect]
     Indication: DEMENTIA
     Dosage: 4.6 MG, / 24 HOURS
     Route: 062
  2. FOLIC ACID [Concomitant]
     Dosage: 5 MG, UNK
  3. TRIVASTAL LP [Suspect]
     Indication: PARKINSONISM
     Dosage: 50 MG, QD
     Route: 048
     Dates: end: 20120123
  4. ACETAMINOPHEN [Concomitant]
     Dosage: 500 MG, UNK
  5. FLAGYL [Concomitant]
  6. POLYETHYLENE GLYCOL [Concomitant]
  7. ESOMEPRAZOLE [Concomitant]
     Dosage: 20 MG, UNK
  8. TRAMADOL HCL [Concomitant]
  9. ROCEPHIN [Concomitant]
  10. MIDODRINE HYDROCHLORIDE [Concomitant]
     Dosage: 2.5 MG, BID
  11. ASPIRIN [Concomitant]
     Dosage: 75 MG, UNK
  12. PANTOPRAZOLE [Concomitant]
     Dosage: 20 MG, UNK
  13. AUGMENTIN '500' [Concomitant]
     Indication: BRONCHITIS
     Dates: start: 20120117
  14. CALCIUM CARBONATE [Concomitant]
     Dosage: 500 MG, UNK
  15. ACETAMINOPHEN [Concomitant]
     Dosage: 500 MG, UNK
  16. ASCORBIC ACID [Concomitant]
  17. AMLODIPINE BESYLATE [Concomitant]
     Dosage: 5 MG, UNK
  18. NEUPRO [Concomitant]
     Dosage: 4 MG, UNK
     Route: 062

REACTIONS (5)
  - MALAISE [None]
  - HALLUCINATION, VISUAL [None]
  - HYPOTENSION [None]
  - DYSKINESIA [None]
  - URINARY INCONTINENCE [None]
